FAERS Safety Report 23076721 (Version 1)
Quarter: 2023Q4

REPORT INFORMATION
  Report Type: Report from Study
  Country: CN (occurrence: CN)
  Receive Date: 20231017
  Receipt Date: 20231017
  Transmission Date: 20240110
  Serious: Yes (Life-Threatening, Hospitalization)
  Sender: FDA-Public Use
  Company Number: CN-BEIGENE-BGN-2022-005484

PATIENT
  Age: 66 Year
  Sex: Male
  Weight: 52 kg

DRUGS (22)
  1. CARBOPLATIN [Suspect]
     Active Substance: CARBOPLATIN
     Indication: Non-small cell lung cancer metastatic
     Dosage: 365.5 MG
     Route: 042
     Dates: start: 20220414
  2. CARBOPLATIN [Suspect]
     Active Substance: CARBOPLATIN
     Dosage: 365.5 MG
     Route: 042
     Dates: start: 20220414
  3. CARBOPLATIN [Suspect]
     Active Substance: CARBOPLATIN
     Dosage: 365.5 MG
     Route: 042
     Dates: start: 20220506, end: 20220506
  4. CARBOPLATIN [Suspect]
     Active Substance: CARBOPLATIN
     Dosage: 365.5 MG
     Route: 042
     Dates: start: 20220506, end: 20220506
  5. CARBOPLATIN [Suspect]
     Active Substance: CARBOPLATIN
     Dosage: UNK
     Route: 042
  6. PACLITAXEL [Suspect]
     Active Substance: PACLITAXEL
     Dosage: 156 MG, QD
     Route: 042
     Dates: start: 20220513, end: 20220513
  7. PACLITAXEL [Suspect]
     Active Substance: PACLITAXEL
     Dosage: 156 MG, QD
     Route: 042
     Dates: start: 20220513, end: 20220513
  8. PACLITAXEL [Suspect]
     Active Substance: PACLITAXEL
     Indication: Non-small cell lung cancer metastatic
     Dosage: 156 MG
     Route: 042
     Dates: start: 20220414
  9. PACLITAXEL [Suspect]
     Active Substance: PACLITAXEL
     Dosage: 156 MG
     Route: 042
     Dates: start: 20220414
  10. PACLITAXEL [Suspect]
     Active Substance: PACLITAXEL
     Dosage: UNK
     Route: 042
  11. OCIPERLIMAB [Suspect]
     Active Substance: OCIPERLIMAB
     Indication: Non-small cell lung cancer metastatic
     Dosage: 900 MG, Q3W
     Route: 042
     Dates: start: 20220414
  12. OCIPERLIMAB [Suspect]
     Active Substance: OCIPERLIMAB
     Dosage: 900 MG, Q3W
     Route: 042
     Dates: start: 20220506
  13. TISLELIZUMAB [Suspect]
     Active Substance: TISLELIZUMAB
     Indication: Non-small cell lung cancer metastatic
     Dosage: 200 MG, Q3W
     Route: 042
     Dates: start: 20220414
  14. TISLELIZUMAB [Suspect]
     Active Substance: TISLELIZUMAB
     Dosage: 200 MG, Q3W
     Route: 042
     Dates: start: 20220506
  15. AZASETRON HYDROCHLORIDE [Concomitant]
     Active Substance: AZASETRON HYDROCHLORIDE
     Indication: Product used for unknown indication
     Dosage: UNK
     Route: 065
  16. CEFDINIR [Concomitant]
     Active Substance: CEFDINIR
     Indication: Anti-infective therapy
     Dosage: UNK
     Route: 065
     Dates: start: 20220425, end: 20220427
  17. CEFDINIR [Concomitant]
     Active Substance: CEFDINIR
     Indication: Pyrexia
  18. CEFODIZIME DISODIUM [Concomitant]
     Active Substance: CEFODIZIME SODIUM
     Indication: Product used for unknown indication
     Dosage: UNK
     Route: 065
     Dates: start: 20220422, end: 20220424
  19. COMPOUND AMINOPHENAZONE AND BARBITAL [Concomitant]
     Indication: Pyrexia
     Dosage: UNK
     Route: 065
     Dates: start: 20220421, end: 20220421
  20. Compound dexamethasone acetate [Concomitant]
     Indication: Rash
     Dosage: UNK
     Route: 065
     Dates: start: 20220505, end: 20220715
  21. ENTECAVIR [Concomitant]
     Active Substance: ENTECAVIR
     Indication: Hepatitis B
     Dosage: UNK
     Route: 065
     Dates: start: 20220314
  22. PROTEIN [Concomitant]
     Active Substance: PROTEIN
     Indication: Hypoalbuminaemia
     Dosage: UNK
     Route: 065
     Dates: start: 20220428, end: 20220504

REACTIONS (2)
  - Neutrophil count decreased [Recovered/Resolved]
  - White blood cell count decreased [Recovered/Resolved]

NARRATIVE: CASE EVENT DATE: 20220516
